FAERS Safety Report 10162470 (Version 2)
Quarter: 2014Q2

REPORT INFORMATION
  Report Type: Report from Study
  Country: GB (occurrence: GB)
  Receive Date: 20140509
  Receipt Date: 20140509
  Transmission Date: 20141212
  Serious: Yes (Other)
  Sender: FDA-Public Use
  Company Number: GB-US-EMD SERONO, INC.-7279512

PATIENT
  Age: 40 Year
  Sex: Female

DRUGS (2)
  1. REBIF [Suspect]
     Indication: RELAPSING-REMITTING MULTIPLE SCLEROSIS
     Route: 058
     Dates: start: 20140304
  2. REBIF [Suspect]
     Route: 058
     Dates: start: 20140408

REACTIONS (2)
  - Lower respiratory tract infection [Unknown]
  - Multiple sclerosis relapse [Recovered/Resolved]
